FAERS Safety Report 9182371 (Version 1)
Quarter: 2013Q1

REPORT INFORMATION
  Report Type: Spontaneous
  Country: US (occurrence: None)
  Receive Date: 20130321
  Receipt Date: 20130321
  Transmission Date: 20140127
  Serious: Yes (Disabling)
  Sender: FDA-Public Use
  Company Number: None

PATIENT
  Age: 59 Year
  Sex: Female
  Weight: 58.06 kg

DRUGS (1)
  1. LOSARTAN/HCTZ 100/25 [Suspect]
     Dates: start: 201001, end: 201303

REACTIONS (4)
  - Eye irritation [None]
  - Glaucoma [None]
  - Visual acuity reduced [None]
  - Photophobia [None]
